FAERS Safety Report 25938044 (Version 1)
Quarter: 2025Q4

REPORT INFORMATION
  Report Type: Spontaneous
  Country: CA (occurrence: CA)
  Receive Date: 20251018
  Receipt Date: 20251018
  Transmission Date: 20260117
  Serious: Yes (Other)
  Sender: CELLTRION
  Company Number: CA-PFIZER INC-202400026142

PATIENT

DRUGS (21)
  1. INFLIXIMAB [Suspect]
     Active Substance: INFLIXIMAB
     Indication: Crohn^s disease
     Dosage: 300 MILLIGRAM
     Route: 042
  2. INFLIXIMAB [Suspect]
     Active Substance: INFLIXIMAB
     Dosage: 300 MILLIGRAM
     Route: 042
  3. INFLIXIMAB [Suspect]
     Active Substance: INFLIXIMAB
     Dosage: 300 MILLIGRAM
     Route: 042
  4. INFLIXIMAB [Suspect]
     Active Substance: INFLIXIMAB
     Dosage: 600 MILLIGRAM
     Route: 042
  5. INFLIXIMAB [Suspect]
     Active Substance: INFLIXIMAB
     Dosage: 600 MILLIGRAM
     Route: 042
  6. INFLIXIMAB [Suspect]
     Active Substance: INFLIXIMAB
     Dosage: 600 MILLIGRAM
     Route: 042
  7. INFLIXIMAB [Suspect]
     Active Substance: INFLIXIMAB
     Dosage: 600 MILLIGRAM
     Route: 042
  8. INFLIXIMAB [Suspect]
     Active Substance: INFLIXIMAB
     Dosage: 600 MILLIGRAM
     Route: 042
  9. INFLIXIMAB [Suspect]
     Active Substance: INFLIXIMAB
     Dosage: 600 MILLIGRAM
     Route: 042
  10. INFLIXIMAB [Suspect]
     Active Substance: INFLIXIMAB
     Dosage: 600 MILLIGRAM
     Route: 042
  11. INFLECTRA [Suspect]
     Active Substance: INFLIXIMAB-DYYB
     Indication: Crohn^s disease
     Dosage: 300 MG, Q 0, 2, 6 WEEKS, THEN EVERY 8 WEEKS
     Route: 042
     Dates: start: 20191130, end: 20200623
  12. INFLECTRA [Suspect]
     Active Substance: INFLIXIMAB-DYYB
     Dosage: 300 MG, EVERY 4 WEEKS
     Route: 042
     Dates: start: 20200917, end: 20220507
  13. INFLECTRA [Suspect]
     Active Substance: INFLIXIMAB-DYYB
     Dosage: 300 MG, EVERY 6 WEEKS
     Route: 042
     Dates: start: 20220602, end: 20220714
  14. INFLECTRA [Suspect]
     Active Substance: INFLIXIMAB-DYYB
     Dosage: 600 MG, RE-INDUCTION FOLLOWED BY Q 8 WEEKS
     Route: 042
     Dates: start: 20230713
  15. INFLECTRA [Suspect]
     Active Substance: INFLIXIMAB-DYYB
     Dosage: 600 MG, RE-INDUCTION FOLLOWED BY Q 8 WEEKS
     Route: 042
     Dates: start: 20231120
  16. INFLECTRA [Suspect]
     Active Substance: INFLIXIMAB-DYYB
     Dosage: 600 MG, RE-INDUCTION FOLLOWED BY Q 8 WEEKS (DOSAGE ADMINISTERED: 600 MG, AFTER 10 WEEKS)
     Route: 042
     Dates: start: 20240129
  17. INFLECTRA [Suspect]
     Active Substance: INFLIXIMAB-DYYB
     Dosage: 600 MG, RE-INDUCTION FOLLOWED BY Q 8 WEEKS (600 MG, AFTER 13 WEEKS AND 3 DAYS)
     Route: 042
     Dates: start: 20240502
  18. INFLECTRA [Suspect]
     Active Substance: INFLIXIMAB-DYYB
     Dosage: 600 MG, RE-INDUCTION FOLLOWED BY Q 8 WEEKS (600 MG, AFTER 13 WEEKS AND 3 DAYS)
     Route: 042
     Dates: start: 20240502
  19. INFLECTRA [Suspect]
     Active Substance: INFLIXIMAB-DYYB
     Dosage: 600 MG, 9 WEEKS AND 6 DAYS (600 MG RE-INDUCTION FOLLOWED BY Q 8 WEEKS)
     Route: 042
     Dates: start: 20250415
  20. INFLECTRA [Suspect]
     Active Substance: INFLIXIMAB-DYYB
     Dosage: 600 MG, 9 WEEKS AND 6 DAYS (600 MG RE-INDUCTION FOLLOWED BY Q 8 WEEKS)
     Route: 042
     Dates: start: 20250415
  21. IMURAN [Concomitant]
     Active Substance: AZATHIOPRINE
     Dosage: 100 MG, 1X/DAY/1 EVERY 1 DAYS

REACTIONS (6)
  - Skin disorder [Recovered/Resolved]
  - Conjunctivitis [Recovered/Resolved]
  - Inappropriate schedule of product administration [Recovered/Resolved]
  - Off label use [Recovered/Resolved]
  - Nasopharyngitis [Recovered/Resolved]
  - Off label use [Unknown]

NARRATIVE: CASE EVENT DATE: 20240101
